FAERS Safety Report 16413449 (Version 1)
Quarter: 2019Q2

REPORT INFORMATION
  Report Type: Spontaneous
  Country: CA (occurrence: CA)
  Receive Date: 20190611
  Receipt Date: 20190611
  Transmission Date: 20190711
  Serious: Yes (Death, Other)
  Sender: FDA-Public Use
  Company Number: CA-TEVA-2019-CA-1061393

PATIENT
  Age: 65 Year
  Sex: Female

DRUGS (11)
  1. ZOLEDRONIC ACID [Concomitant]
     Active Substance: ZOLEDRONIC ACID
     Indication: PRODUCT USED FOR UNKNOWN INDICATION
     Route: 065
  2. VITAMIN B12 [Concomitant]
     Active Substance: CYANOCOBALAMIN
     Indication: PRODUCT USED FOR UNKNOWN INDICATION
     Route: 065
  3. FOLIC ACID. [Concomitant]
     Active Substance: FOLIC ACID
     Indication: PRODUCT USED FOR UNKNOWN INDICATION
     Route: 065
  4. OXYBUTYNIN. [Concomitant]
     Active Substance: OXYBUTYNIN CHLORIDE
     Indication: PRODUCT USED FOR UNKNOWN INDICATION
     Route: 065
  5. ACTEMRA [Suspect]
     Active Substance: TOCILIZUMAB
     Indication: TEMPORAL ARTERITIS
     Route: 042
  6. ASA [Concomitant]
     Active Substance: ASPIRIN
     Indication: PRODUCT USED FOR UNKNOWN INDICATION
     Route: 065
  7. METHOTREXATE. [Concomitant]
     Active Substance: METHOTREXATE
     Indication: PRODUCT USED FOR UNKNOWN INDICATION
     Route: 065
  8. OMNARIS [Concomitant]
     Active Substance: CICLESONIDE
     Indication: PRODUCT USED FOR UNKNOWN INDICATION
     Dosage: SPRAY, METERED DOSE
     Route: 050
  9. SYNTHROID [Concomitant]
     Active Substance: LEVOTHYROXINE SODIUM
     Indication: PRODUCT USED FOR UNKNOWN INDICATION
     Route: 065
  10. PREDNISONE. [Suspect]
     Active Substance: PREDNISONE
     Indication: PRODUCT USED FOR UNKNOWN INDICATION
     Route: 065
  11. D-ALPHA TOCOPHERYL ACETATE/DOCOSAHEXAENOICACID/EICOSAPENTAENOIC ACID [Concomitant]
     Indication: PRODUCT USED FOR UNKNOWN INDICATION
     Route: 065

REACTIONS (4)
  - Contusion [Fatal]
  - Pain [Fatal]
  - Blood pressure decreased [Fatal]
  - Aneurysm ruptured [Fatal]
